FAERS Safety Report 5445391-8 (Version None)
Quarter: 2007Q3

REPORT INFORMATION
  Report Type: 
  Country: None (occurrence: None)
  Receive Date: 20070906
  Receipt Date: 20070607
  Transmission Date: 20080115
  Serious: No
  Sender: FDA-Public Use
  Company Number: A0654639A

PATIENT
  Age: 37 Year
  Sex: Male

DRUGS (2)
  1. REQUIP [Suspect]
     Indication: PERIODIC LIMB MOVEMENT DISORDER
     Route: 048
  2. XANAX [Concomitant]

REACTIONS (1)
  - PAIN IN EXTREMITY [None]
